FAERS Safety Report 15907480 (Version 1)
Quarter: 2019Q1

REPORT INFORMATION
  Report Type: Spontaneous
  Country: US (occurrence: US)
  Receive Date: 20190204
  Receipt Date: 20190204
  Transmission Date: 20190417
  Serious: No
  Sender: FDA-Public Use
  Company Number: US-TAKEDA-2019MPI000748

PATIENT
  Sex: Female

DRUGS (1)
  1. NINLARO [Suspect]
     Active Substance: IXAZOMIB CITRATE
     Indication: PLASMA CELL MYELOMA
     Dosage: 4 MILLIGRAM
     Route: 048
     Dates: start: 20181215

REACTIONS (5)
  - Asthenia [Unknown]
  - Unevaluable event [Unknown]
  - Pollakiuria [Unknown]
  - Paranasal sinus hypersecretion [Unknown]
  - Nausea [Unknown]
